FAERS Safety Report 15415803 (Version 1)
Quarter: 2018Q3

REPORT INFORMATION
  Report Type: Spontaneous
  Country: CA (occurrence: US)
  Receive Date: 20180922
  Receipt Date: 20180922
  Transmission Date: 20181010
  Serious: Yes (Hospitalization, Other)
  Sender: FDA-Public Use
  Company Number: CA-AMGEN-USASP2018128992

PATIENT
  Age: 65 Year
  Sex: Male

DRUGS (9)
  1. TACROLIMUS. [Concomitant]
     Active Substance: TACROLIMUS
  2. MAGNESIUM [Concomitant]
     Active Substance: MAGNESIUM
  3. VITAMIN A [Concomitant]
     Active Substance: VITAMIN A
  4. PREDNISOLONE. [Concomitant]
     Active Substance: PREDNISOLONE
  5. VITAMIN K2 [Concomitant]
     Active Substance: MENAQUINONE 6
  6. SENSIPAR [Suspect]
     Active Substance: CINACALCET HYDROCHLORIDE
     Indication: OSTEOPOROSIS POSTMENOPAUSAL
     Dosage: 30 MG, BID
     Route: 065
     Dates: start: 2012
  7. MYCOPHENOLIC ACID. [Concomitant]
     Active Substance: MYCOPHENOLIC ACID
  8. VITAMIN B3 [Concomitant]
     Active Substance: NIACIN
  9. VITAMIN D [Concomitant]
     Active Substance: CHOLECALCIFEROL

REACTIONS (5)
  - Off label use [Unknown]
  - Renal transplant [Unknown]
  - Blood calcium increased [Unknown]
  - Vitamin D decreased [Unknown]
  - Blood magnesium decreased [Unknown]

NARRATIVE: CASE EVENT DATE: 20170329
